FAERS Safety Report 14697639 (Version 1)
Quarter: 2018Q1

REPORT INFORMATION
  Report Type: Spontaneous
  Country: US (occurrence: US)
  Receive Date: 20180330
  Receipt Date: 20180330
  Transmission Date: 20180509
  Serious: No
  Sender: FDA-Public Use
  Company Number: US-SA-2017SA223233

PATIENT
  Age: 72 Year
  Sex: Female

DRUGS (1)
  1. ALLEGRA ALLERGY [Suspect]
     Active Substance: FEXOFENADINE HYDROCHLORIDE
     Indication: SEASONAL ALLERGY
     Dosage: START DATE-10 YEARS AGO
     Route: 048

REACTIONS (3)
  - Pain in extremity [Unknown]
  - Arthritis [Unknown]
  - Product quality issue [Unknown]
